FAERS Safety Report 7214770-0 (Version None)
Quarter: 2011Q1

REPORT INFORMATION
  Report Type: 
  Country: None (occurrence: None)
  Receive Date: 20110107
  Receipt Date: 20100203
  Transmission Date: 20110831
  Serious: No
  Sender: FDA-Public Use
  Company Number: A0842805A

PATIENT
  Age: 81 Year
  Sex: Male

DRUGS (3)
  1. LOVAZA [Suspect]
     Dosage: 2G TWICE PER DAY
     Route: 048
     Dates: start: 20091201
  2. CARDURA [Concomitant]
  3. VITAMIN B1 TAB [Concomitant]

REACTIONS (2)
  - DYSGEUSIA [None]
  - HYPERGEUSIA [None]
